FAERS Safety Report 4322129-9 (Version None)
Quarter: 2004Q1

REPORT INFORMATION
  Report Type: 
  Country: None (occurrence: None)
  Receive Date: 20040319
  Receipt Date: 20040308
  Transmission Date: 20041129
  Serious: Yes (Hospitalization)
  Sender: FDA-Public Use
  Company Number: A044-002-004892

PATIENT
  Age: 77 Year
  Sex: Female

DRUGS (3)
  1. ARICEPT [Suspect]
     Indication: DEMENTIA ALZHEIMER'S TYPE
     Dosage: 5 MG, 1 IN 1 D, ORAL
     Route: 048
     Dates: start: 20030401, end: 20040106
  2. LACIDIPINE [Concomitant]
  3. LANOXIN [Concomitant]

REACTIONS (2)
  - DUODENAL ULCER PERFORATION [None]
  - PERITONITIS [None]
